FAERS Safety Report 23872354 (Version 1)
Quarter: 2024Q2

REPORT INFORMATION
  Report Type: Spontaneous
  Country: SI (occurrence: SI)
  Receive Date: 20240520
  Receipt Date: 20240520
  Transmission Date: 20240716
  Serious: Yes (Hospitalization, Other)
  Sender: FDA-Public Use
  Company Number: SI-CDSU_IT-SI-MEN-096028

PATIENT
  Age: 24 Year
  Sex: Male

DRUGS (17)
  1. MONTELUKAST SODIUM [Suspect]
     Active Substance: MONTELUKAST SODIUM
     Indication: Cutaneous vasculitis
     Dosage: 10 MILLIGRAM
     Route: 065
  2. MONTELUKAST SODIUM [Suspect]
     Active Substance: MONTELUKAST SODIUM
     Indication: Immunosuppressant drug therapy
  3. MONTELUKAST SODIUM [Suspect]
     Active Substance: MONTELUKAST SODIUM
     Indication: Cutaneous vasculitis
  4. CYCLOSPORINE [Suspect]
     Active Substance: CYCLOSPORINE
     Indication: Cutaneous vasculitis
     Dosage: 100  MG+100  MG+150  MG
     Route: 065
  5. CYCLOSPORINE [Suspect]
     Active Substance: CYCLOSPORINE
     Indication: Immunosuppressant drug therapy
  6. CYCLOSPORINE [Suspect]
     Active Substance: CYCLOSPORINE
     Indication: Cutaneous vasculitis
  7. PREDNISOLONE [Suspect]
     Active Substance: PREDNISOLONE
     Indication: Cutaneous vasculitis
     Dosage: 40 MILLIGRAM
     Route: 065
  8. PREDNISOLONE [Suspect]
     Active Substance: PREDNISOLONE
     Indication: Cutaneous vasculitis
     Dosage: REDUCED BY 5 MG WEEKLY TO 20 MG PER DAY
     Route: 065
  9. PREDNISOLONE [Suspect]
     Active Substance: PREDNISOLONE
     Indication: Immunosuppressant drug therapy
  10. TICAGRELOR [Suspect]
     Active Substance: TICAGRELOR
     Indication: Cutaneous vasculitis
     Dosage: 90 MILLIGRAM, Q12H
     Route: 065
  11. TICAGRELOR [Suspect]
     Active Substance: TICAGRELOR
     Indication: Cutaneous vasculitis
  12. BILASTINE [Suspect]
     Active Substance: BILASTINE
     Indication: Cutaneous vasculitis
     Dosage: 20 MILLIGRAM, Q6H
     Route: 048
  13. BILASTINE [Suspect]
     Active Substance: BILASTINE
     Indication: Immunosuppressant drug therapy
  14. NAPROXEN [Suspect]
     Active Substance: NAPROXEN
     Indication: Cutaneous vasculitis
     Dosage: 550 MILLIGRAM, Q12H
     Route: 065
  15. NAPROXEN [Suspect]
     Active Substance: NAPROXEN
     Indication: Pain management
  16. BILASTINE [Concomitant]
     Active Substance: BILASTINE
     Indication: Cutaneous vasculitis
     Dosage: 20 MG 2 TABLETS EVERY 12 HRS
  17. PANTOPRAZOLE [Concomitant]
     Active Substance: PANTOPRAZOLE
     Indication: Cutaneous vasculitis
     Dosage: 40 MILLIGRAM
     Route: 065

REACTIONS (5)
  - Inappropriate schedule of product administration [Recovered/Resolved]
  - Urticarial vasculitis [Recovered/Resolved]
  - Overdose [Recovered/Resolved]
  - Product use in unapproved indication [Recovered/Resolved]
  - Drug effective for unapproved indication [Unknown]
